FAERS Safety Report 4526937-0 (Version None)
Quarter: 2004Q4

REPORT INFORMATION
  Report Type: 
  Country: None (occurrence: None)
  Receive Date: 20041208
  Receipt Date: 20041124
  Transmission Date: 20050328
  Serious: Yes (Life-Threatening, Hospitalization)
  Sender: FDA-Public Use
  Company Number: 2004-03014

PATIENT
  Age: 57 Year
  Sex: Male

DRUGS (2)
  1. IMMUCYST (BCG - IT (CONNAUGHT)),AVENTIS PASTEUR LTD. [Suspect]
     Indication: BLADDER CANCER
     Dosage: (81.0 MG), B.IN.,BLADDER
     Route: 043
     Dates: start: 20040824
  2. TEGAFUR-URACIL [Concomitant]

REACTIONS (1)
  - INTERSTITIAL LUNG DISEASE [None]
